FAERS Safety Report 5713104-8 (Version None)
Quarter: 2008Q2

REPORT INFORMATION
  Report Type: 
  Country: None (occurrence: None)
  Receive Date: 20080418
  Receipt Date: 20080408
  Transmission Date: 20081010
  Serious: Yes (Hospitalization)
  Sender: FDA-Public Use
  Company Number: 2008-01221

PATIENT
  Age: 53 Year
  Sex: Male
  Weight: 81 kg

DRUGS (9)
  1. VELCADE [Suspect]
     Indication: MULTIPLE MYELOMA
     Dosage: 2.6 MG, INTRAVENOUS
     Route: 042
     Dates: start: 20080130, end: 20080404
  2. DOXORUBICIN HCL [Suspect]
     Indication: MULTIPLE MYELOMA
     Dosage: 18 MG, INTRAVENOUS
     Route: 042
     Dates: start: 20080130, end: 20080328
  3. DEXAMETHASONE TAB [Suspect]
     Indication: MULTIPLE MYELOMA
     Dosage: 40 MG, ORAL
     Route: 048
     Dates: start: 20080130, end: 20080405
  4. VALACYCLOVIR [Concomitant]
  5. ROXITHROMYCIN (ROXITHROMYCIN) [Concomitant]
  6. FLUCONAZOLE [Concomitant]
  7. MS CONTIN [Concomitant]
  8. OMEPRAZOLE [Concomitant]
  9. LEGENDAL (LACTULOSE) [Concomitant]

REACTIONS (1)
  - ATRIAL FIBRILLATION [None]
